FAERS Safety Report 8818579 (Version 5)
Quarter: 2012Q4

REPORT INFORMATION
  Report Type: 
  Country: GB (occurrence: GB)
  Receive Date: 20121001
  Receipt Date: 20121106
  Transmission Date: 20130627
  Serious: Yes (Disabling, Other)
  Sender: FDA-Public Use
  Company Number: GB-PFIZER INC-2012237455

PATIENT
  Age: 64 Year
  Sex: Female
  Weight: 48.1 kg

DRUGS (16)
  1. SIMVASTATIN [Suspect]
     Indication: HYPERLIPIDAEMIA
     Dosage: 40 mg, daily
     Route: 048
     Dates: start: 20100128
  2. SIMVASTATIN [Suspect]
     Indication: HYPERCHOLESTEREMIA
     Dosage: 40 mg, daily
     Route: 048
     Dates: start: 20100514
  3. PRAVASTATIN SODIUM [Suspect]
     Indication: HYPERLIPIDAEMIA
     Dosage: 40mg Daily
     Route: 048
     Dates: start: 20100205
  4. PRAVASTATIN SODIUM [Suspect]
     Indication: HYPERCHOLESTEREMIA
     Dosage: 40mg Daily
     Route: 048
     Dates: start: 20100301
  5. PRAVASTATIN SODIUM [Suspect]
     Dosage: 20mg Daily
     Route: 048
     Dates: start: 20100316
  6. ATORVASTATIN [Suspect]
     Indication: HYPERLIPIDAEMIA
     Dosage: 20 mg, UNK
     Route: 048
     Dates: start: 20100609
  7. ATORVASTATIN [Suspect]
     Indication: HYPERCHOLESTEREMIA
  8. BENDROFLUAZIDE [Concomitant]
     Indication: INCREASED BLOOD PRESSURE
     Dosage: 2.5 mg, 1x/day
     Route: 048
     Dates: start: 20100401, end: 20100429
  9. SENNA [Concomitant]
     Indication: CONSTIPATION
     Dosage: 15 mg, 1x/day at night
     Route: 048
     Dates: start: 20100205
  10. SENNA [Concomitant]
     Dosage: 15 mg, 1x/day
     Route: 048
     Dates: start: 20111005
  11. PROTHIADEN [Concomitant]
     Indication: DEPRESSION
     Dosage: 150 mg, UNK
     Route: 048
     Dates: start: 20040727
  12. AMLODIPINE [Concomitant]
     Indication: BLOOD PRESSURE INCREASED
     Dosage: 5 mg, 1x/day
     Route: 048
     Dates: start: 20100326, end: 20100401
  13. PARACETAMOL [Concomitant]
     Indication: PAIN
     Dosage: 1 g, as needed
     Route: 048
     Dates: start: 20080129
  14. PERINDOPRIL [Concomitant]
     Dosage: UNK
     Dates: start: 20100429, end: 20100514
  15. PERINDOPRIL [Concomitant]
     Dosage: UNK
     Dates: start: 20100514, end: 20100609
  16. RANITIDINE [Concomitant]
     Indication: DIGESTION IMPAIRED
     Dosage: UNK

REACTIONS (17)
  - Vision blurred [Unknown]
  - Diplopia [Unknown]
  - Pruritus [Not Recovered/Not Resolved]
  - Muscle spasms [Not Recovered/Not Resolved]
  - Weight decreased [Not Recovered/Not Resolved]
  - Oedema peripheral [Unknown]
  - Paraesthesia [Unknown]
  - Skin depigmentation [Unknown]
  - Hepatomegaly [Unknown]
  - Vasodilatation [Unknown]
  - Fatigue [Not Recovered/Not Resolved]
  - Ear discomfort [Unknown]
  - Pruritus [Unknown]
  - Depression [Unknown]
  - Muscle atrophy [Unknown]
  - Glomerular filtration rate decreased [Unknown]
  - Urticaria [Unknown]
